FAERS Safety Report 9631039 (Version 1)
Quarter: 2013Q4

REPORT INFORMATION
  Report Type: Spontaneous
  Country: US (occurrence: None)
  Receive Date: 20131015
  Receipt Date: 20131015
  Transmission Date: 20140711
  Serious: Yes (Hospitalization, Other)
  Sender: FDA-Public Use
  Company Number: 1261457

PATIENT
  Age: 4 Year
  Sex: Female
  Weight: 17.24 kg

DRUGS (1)
  1. DRAMAMINE [Suspect]
     Indication: MOTION SICKNESS
     Dosage: FOR 1  DOSE
     Route: 048
     Dates: start: 20130621

REACTIONS (2)
  - Convulsion [None]
  - Pyrexia [None]
